FAERS Safety Report 18277675 (Version 1)
Quarter: 2020Q3

REPORT INFORMATION
  Report Type: Spontaneous
  Country: US (occurrence: US)
  Receive Date: 20200916
  Receipt Date: 20200916
  Transmission Date: 20201103
  Serious: Yes (Hospitalization)
  Sender: FDA-Public Use
  Company Number: None

PATIENT
  Sex: Female

DRUGS (12)
  1. ONDANSETRON [Concomitant]
     Active Substance: ONDANSETRON
  2. OLIC ACID [Concomitant]
  3. SPIRONOLACT [Concomitant]
     Active Substance: SPIRONOLACTONE
  4. AMBRISENTAN 10MG TAB [Suspect]
     Active Substance: AMBRISENTAN
     Indication: PULMONARY ARTERIAL HYPERTENSION
     Route: 048
     Dates: start: 20160719
  5. AUG BETAMET [Concomitant]
  6. MEOLAZONE [Concomitant]
  7. TORSEMIDE. [Concomitant]
     Active Substance: TORSEMIDE
  8. METHIMAZOLE. [Concomitant]
     Active Substance: METHIMAZOLE
  9. PANTOPRAZOLE [Concomitant]
     Active Substance: PANTOPRAZOLE
  10. SERTRALINE [Concomitant]
     Active Substance: SERTRALINE HYDROCHLORIDE
  11. ALBUTEROL AER [Concomitant]
     Active Substance: ALBUTEROL
  12. POT CL MICRO [Concomitant]

REACTIONS (1)
  - Condition aggravated [None]
